FAERS Safety Report 8625944-6 (Version None)
Quarter: 2012Q3

REPORT INFORMATION
  Report Type: 
  Country: None (occurrence: None)
  Receive Date: 20120827
  Receipt Date: 20120813
  Transmission Date: 20120928
  Serious: Yes (Hospitalization)
  Sender: FDA-Public Use
  Company Number: DE-TEVA-353809GER

PATIENT
  Age: 76 Year
  Sex: Male
  Weight: 43 kg

DRUGS (5)
  1. IBUPROFEN 600 [Concomitant]
     Indication: PAIN
     Route: 048
  2. FOSAMAX [Concomitant]
     Indication: OSTEOPOROSIS
     Route: 048
     Dates: start: 20050101
  3. ABATACEPT [Suspect]
     Indication: RHEUMATOID ARTHRITIS
     Route: 042
     Dates: start: 20110201, end: 20111201
  4. PREDNISOLONE [Suspect]
     Indication: RHEUMATOID ARTHRITIS
     Dosage: 5-10 MG DAILY
     Route: 048
     Dates: start: 19800101
  5. CALCIUM CARBONATE [Concomitant]
     Indication: OSTEOPOROSIS
     Route: 048
     Dates: start: 19900101

REACTIONS (2)
  - MENINGITIS HERPES [None]
  - HERPES ZOSTER DISSEMINATED [None]
